FAERS Safety Report 19085420 (Version 1)
Quarter: 2021Q2

REPORT INFORMATION
  Report Type: Spontaneous
  Country: IT (occurrence: IT)
  Receive Date: 20210402
  Receipt Date: 20210402
  Transmission Date: 20210717
  Serious: Yes (Other)
  Sender: FDA-Public Use
  Company Number: IT-ABBVIE-21K-083-3843535-00

PATIENT

DRUGS (1)
  1. UPADACITINIB [Suspect]
     Active Substance: UPADACITINIB
     Indication: PRODUCT USED FOR UNKNOWN INDICATION
     Route: 048

REACTIONS (1)
  - Pericarditis [Unknown]
